FAERS Safety Report 13177398 (Version 1)
Quarter: 2017Q1

REPORT INFORMATION
  Report Type: Report from Study
  Country: US (occurrence: US)
  Receive Date: 20170201
  Receipt Date: 20170201
  Transmission Date: 20170428
  Serious: No
  Sender: FDA-Public Use
  Company Number: US-EXELIXIS-CABO-16006100

PATIENT
  Sex: Male

DRUGS (1)
  1. COMETRIQ [Suspect]
     Active Substance: CABOZANTINIB S-MALATE
     Indication: PARAGANGLION NEOPLASM
     Dosage: 60 MG, QD
     Route: 048
     Dates: start: 20160225

REACTIONS (5)
  - Off label use [Unknown]
  - Skin burning sensation [Recovering/Resolving]
  - Hypothyroidism [Not Recovered/Not Resolved]
  - Nausea [Unknown]
  - Hypertension [Not Recovered/Not Resolved]
